FAERS Safety Report 6085478-2 (Version None)
Quarter: 2009Q1

REPORT INFORMATION
  Report Type: 
  Country: None (occurrence: None)
  Receive Date: 20090218
  Receipt Date: 20090205
  Transmission Date: 20090719
  Serious: No
  Sender: FDA-Public Use
  Company Number: 005578

PATIENT
  Age: 55 Year
  Sex: Male

DRUGS (1)
  1. PLETAL [Suspect]
     Dosage: 100 MG, BID;ORAL
     Route: 048
     Dates: start: 20080801

REACTIONS (2)
  - DEPRESSION [None]
  - PERSONALITY CHANGE [None]
